FAERS Safety Report 9397542 (Version 1)
Quarter: 2013Q3

REPORT INFORMATION
  Report Type: Spontaneous
  Country: US (occurrence: US)
  Receive Date: 20130712
  Receipt Date: 20130712
  Transmission Date: 20140515
  Serious: Yes (Congenital Anomaly, Other)
  Sender: FDA-Public Use
  Company Number: US-PFIZER INC-2013202479

PATIENT
  Sex: Female

DRUGS (3)
  1. ZOLOFT [Suspect]
     Dosage: UNK
     Route: 064
     Dates: start: 20101124
  2. SERTRALINE HCL [Suspect]
     Dosage: UNK
     Route: 064
     Dates: start: 20101124
  3. LEXAPRO [Suspect]
     Dosage: UNK
     Route: 064
     Dates: start: 2010

REACTIONS (3)
  - Maternal exposure during pregnancy [Unknown]
  - Hypoplastic left heart syndrome [Unknown]
  - Congenital anomaly [Unknown]
